FAERS Safety Report 9254711 (Version 1)
Quarter: 2013Q2

REPORT INFORMATION
  Report Type: Spontaneous
  Country: DE (occurrence: None)
  Receive Date: 20130422
  Receipt Date: 20130422
  Transmission Date: 20140414
  Serious: Yes (Hospitalization)
  Sender: FDA-Public Use
  Company Number: 2013-001175

PATIENT
  Sex: Female

DRUGS (3)
  1. ACTONEL EINMAL WOCHENTLICH 35 MG (RISEDRONATE SODIUM) TABLET, 35MG [Suspect]
  2. L-THYROXIN (LEVOTHYROXINE SODIUM) [Concomitant]
  3. ALL OTHER THERAPEUTIC PRODUCTS [Concomitant]

REACTIONS (2)
  - Blood pressure abnormal [None]
  - Cardiac disorder [None]
